FAERS Safety Report 6706579-9 (Version None)
Quarter: 2010Q2

REPORT INFORMATION
  Report Type: 
  Country: None (occurrence: None)
  Receive Date: 20100423
  Receipt Date: 20091215
  Transmission Date: 20101027
  Serious: No
  Sender: FDA-Public Use
  Company Number: ALL1-2009-04041

PATIENT
  Age: 6 Year
  Sex: Female
  Weight: 15.9 kg

DRUGS (5)
  1. VYVANSE [Suspect]
     Indication: ATTENTION DEFICIT/HYPERACTIVITY DISORDER
     Dosage: 50 MG, 1X/DAY:QD, ORAL
     Route: 048
     Dates: start: 20090401
  2. INTUNIV [Suspect]
     Indication: ATTENTION DEFICIT/HYPERACTIVITY DISORDER
     Dosage: 1 MG, 1X/DAY:QD, ORAL
     Route: 048
     Dates: start: 20091205
  3. CHLORAL HYDRATE (CHLORAL HYDRATE) [Concomitant]
  4. CLONIDINE [Concomitant]
  5. DEPAKOTE [Concomitant]

REACTIONS (1)
  - CONTUSION [None]
